FAERS Safety Report 4885890-0 (Version None)
Quarter: 2006Q1

REPORT INFORMATION
  Report Type: 
  Country: None (occurrence: None)
  Receive Date: 20060120
  Receipt Date: 20031016
  Transmission Date: 20060701
  Serious: Yes (Other)
  Sender: FDA-Public Use
  Company Number: US-ROCHE-349600

PATIENT
  Age: 17 Year
  Sex: Female

DRUGS (8)
  1. ACCUTANE [Suspect]
     Indication: ACNE
     Route: 048
     Dates: start: 19951211, end: 19960118
  2. ACCUTANE [Suspect]
     Dosage: 20MG QAM AND 40MG QHS
     Route: 048
     Dates: start: 19960119, end: 19960515
  3. ACCUTANE [Suspect]
     Route: 048
     Dates: start: 19980215, end: 19980715
  4. ORTHO TRI-CYCLEN [Concomitant]
     Route: 048
     Dates: start: 19951115
  5. IRON SUPPLEMENT [Concomitant]
  6. TAGAMET HB [Concomitant]
     Dosage: 400MG QAM AND 800MG QHS.
  7. MINOCIN [Concomitant]
  8. SALICYLIC ACID LOTION [Concomitant]
     Dosage: WASHES

REACTIONS (18)
  - ACNE [None]
  - ANXIETY [None]
  - BLOOD SODIUM DECREASED [None]
  - COLITIS ULCERATIVE [None]
  - CONDITION AGGRAVATED [None]
  - CONJUNCTIVITIS [None]
  - DRUG INTOLERANCE [None]
  - DRY SKIN [None]
  - DYSURIA [None]
  - HAEMORRHOIDS [None]
  - INFLAMMATORY BOWEL DISEASE [None]
  - IRON DEFICIENCY ANAEMIA [None]
  - NAUSEA [None]
  - RETCHING [None]
  - ULCERATIVE KERATITIS [None]
  - VISION BLURRED [None]
  - VOMITING [None]
  - WEIGHT DECREASED [None]
